FAERS Safety Report 5337749-2 (Version None)
Quarter: 2007Q2

REPORT INFORMATION
  Report Type: 
  Country: None (occurrence: None)
  Receive Date: 20070308
  Receipt Date: 20070109
  Transmission Date: 20071010
  Serious: No
  Sender: FDA-Public Use
  Company Number: 2006-BP-14072BP

PATIENT
  Sex: Male

DRUGS (5)
  1. SPIRIVA [Suspect]
     Indication: CHRONIC OBSTRUCTIVE PULMONARY DISEASE
     Dosage: 18 MCG (18 MCG, 1 CAPSULE INHALE DAILY), IH
     Route: 055
     Dates: start: 20051201, end: 20061201
  2. FLOMAX (MORNIFLUMATE) [Concomitant]
  3. GUAIFENISIN (GUAIFENESIN) [Concomitant]
  4. ASPIRIN [Concomitant]
  5. MIRTAZAPINE [Concomitant]

REACTIONS (1)
  - PROSTATIC SPECIFIC ANTIGEN INCREASED [None]
